FAERS Safety Report 7307755-7 (Version None)
Quarter: 2011Q1

REPORT INFORMATION
  Report Type: 
  Country: None (occurrence: None)
  Receive Date: 20110210
  Receipt Date: 20110120
  Transmission Date: 20110831
  Serious: Yes (Death)
  Sender: FDA-Public Use
  Company Number: AE11-011-3

PATIENT
  Age: 38 Year
  Sex: Female

DRUGS (1)
  1. LORCET-HD [Suspect]

REACTIONS (3)
  - INTENTIONAL OVERDOSE [None]
  - CARDIAC ARREST [None]
  - RESPIRATORY ARREST [None]
